FAERS Safety Report 4973504-0 (Version None)
Quarter: 2006Q2

REPORT INFORMATION
  Report Type: 
  Country: None (occurrence: None)
  Receive Date: 20060413
  Receipt Date: 20060413
  Transmission Date: 20061013
  Serious: Yes (Other)
  Sender: FDA-Public Use
  Company Number: None

PATIENT
  Age: 73 Year
  Sex: Male

DRUGS (2)
  1. ACTOS [Suspect]
     Dosage: ORAL;30. 0MILLIGRAM
     Route: 048
     Dates: start: 20050614, end: 20060101
  2. GLIPIZIDE [Concomitant]

REACTIONS (7)
  - BLOOD GLUCOSE INCREASED [None]
  - DRUG ERUPTION [None]
  - DRUG INEFFECTIVE [None]
  - EOSINOPHILIA [None]
  - INFECTION PARASITIC [None]
  - RASH PRURITIC [None]
  - TREATMENT NONCOMPLIANCE [None]
